FAERS Safety Report 9170455 (Version 2)
Quarter: 2013Q3

REPORT INFORMATION
  Report Type: Spontaneous
  Country: US (occurrence: None)
  Receive Date: 20130307
  Receipt Date: 20130722
  Transmission Date: 20140515
  Serious: Yes (Hospitalization)
  Sender: FDA-Public Use
  Company Number: ACO_34417_2013

PATIENT
  Age: 56 Year
  Sex: Female

DRUGS (6)
  1. AMPYRA [Suspect]
     Indication: MULTIPLE SCLEROSIS
     Dates: start: 20110922
  2. AMANTADINE [Concomitant]
  3. AVONEX (INTERFERON BETA-1A) [Concomitant]
  4. CYMBALTA (DULEXTINE HYDROCHLORIDE) [Concomitant]
  5. DITROPAN (OXYBUTYNIN HYDROCHLORIDE) [Concomitant]
  6. THERAGRAN-M (MIN ERALS NOS, VITAMINS NOS) [Concomitant]

REACTIONS (3)
  - Malaise [None]
  - Memory impairment [None]
  - Drug administration error [None]
